FAERS Safety Report 20827366 (Version 1)
Quarter: 2022Q2

REPORT INFORMATION
  Report Type: Spontaneous
  Country: US (occurrence: None)
  Receive Date: 20220513
  Receipt Date: 20220513
  Transmission Date: 20220721
  Serious: Yes (Hospitalization)
  Sender: FDA-Public Use
  Company Number: None

PATIENT
  Age: 67 Year
  Sex: Female

DRUGS (3)
  1. CIMZIA [Suspect]
     Active Substance: CERTOLIZUMAB PEGOL
     Indication: Product used for unknown indication
     Dosage: 2X200 MG/ML??INJECT 400 MG UNDER THE SKIN (SUBCUTANEOUS INJECTION) EVERY 28 DAYS
     Route: 058
     Dates: start: 20210331
  2. CIMZIA [Suspect]
     Active Substance: CERTOLIZUMAB PEGOL
     Dosage: OTHER FREQUENCY : EVERY 28 DAYS;?
     Route: 058
  3. FORTEO [Concomitant]
     Active Substance: TERIPARATIDE

REACTIONS (1)
  - Neck surgery [None]

NARRATIVE: CASE EVENT DATE: 20220310
